FAERS Safety Report 4554723-4 (Version None)
Quarter: 2004Q4

REPORT INFORMATION
  Report Type: 
  Country: None (occurrence: None)
  Receive Date: 20041227
  Receipt Date: 20041022
  Transmission Date: 20050328
  Serious: No
  Sender: FDA-Public Use
  Company Number: US096535

PATIENT
  Age: 58 Year
  Sex: Female
  Weight: 102.5 kg

DRUGS (1)
  1. SENSIPAR [Suspect]
     Indication: HYPERPARATHYROIDISM SECONDARY
     Dosage: 90 MG, 1 IN 1 DAYS, PO
     Route: 048
     Dates: start: 20040609

REACTIONS (1)
  - BLOOD PHOSPHORUS INCREASED [None]
